FAERS Safety Report 21036003 (Version 1)
Quarter: 2022Q3

REPORT INFORMATION
  Report Type: Spontaneous
  Country: US (occurrence: US)
  Receive Date: 20220701
  Receipt Date: 20220701
  Transmission Date: 20221026
  Serious: No
  Sender: FDA-Public Use
  Company Number: US-KRAMERLABS-2021-US-016168

PATIENT
  Age: 23 Year
  Sex: Male
  Weight: 72.58 kg

DRUGS (1)
  1. NIZORAL A-D [Suspect]
     Active Substance: KETOCONAZOLE
     Indication: Psoriasis
     Dosage: TWICE WEEKLY
     Route: 061
     Dates: start: 20210621

REACTIONS (3)
  - Drug ineffective [Unknown]
  - Alopecia [Not Recovered/Not Resolved]
  - Pain of skin [Not Recovered/Not Resolved]

NARRATIVE: CASE EVENT DATE: 20210621
